FAERS Safety Report 25819282 (Version 2)
Quarter: 2025Q4

REPORT INFORMATION
  Report Type: Spontaneous
  Country: US (occurrence: US)
  Receive Date: 20250918
  Receipt Date: 20251121
  Transmission Date: 20260118
  Serious: No
  Sender: SANOFI AVENTIS
  Company Number: US-SANOFI-02653777

PATIENT
  Age: 63 Year
  Sex: Female

DRUGS (2)
  1. DUPIXENT [Suspect]
     Active Substance: DUPILUMAB
     Indication: Seborrhoeic dermatitis
     Dosage: 300 MG, QOW
     Route: 065
     Dates: start: 2023
  2. DUPIXENT [Suspect]
     Active Substance: DUPILUMAB
     Indication: Eczema

REACTIONS (14)
  - Trichiasis [Unknown]
  - Seborrhoea [Unknown]
  - Discharge [Unknown]
  - Seborrhoeic dermatitis [Unknown]
  - Condition aggravated [Unknown]
  - Blepharitis [Unknown]
  - Skin weeping [Unknown]
  - Eye pain [Unknown]
  - Condition aggravated [Unknown]
  - Eye inflammation [Unknown]
  - Eye irritation [Unknown]
  - Off label use [Unknown]
  - Accidental exposure to product [Unknown]
  - Exposure via skin contact [Unknown]

NARRATIVE: CASE EVENT DATE: 20230101
